FAERS Safety Report 8638276 (Version 3)
Quarter: 2012Q4

REPORT INFORMATION
  Report Type: Report from Study
  Country: FR (occurrence: FR)
  Receive Date: 20120627
  Receipt Date: 20121016
  Transmission Date: 20130627
  Serious: Yes (Other)
  Sender: FDA-Public Use
  Company Number: FR-AMGEN-FRACT2012038382

PATIENT
  Age: 66 Year
  Sex: Female

DRUGS (2)
  1. ROMIPLOSTIM [Suspect]
     Indication: THROMBOCYTOPENIA
     Dosage: UNK, qwk
     Route: 058
     Dates: start: 20100928, end: 20110809
  2. TRIATEC [Concomitant]
     Indication: BLOOD PRESSURE INCREASED
     Dosage: UNK
     Dates: start: 20081006

REACTIONS (1)
  - Phlebitis [Recovered/Resolved]
